FAERS Safety Report 8270542-X (Version None)
Quarter: 2012Q2

REPORT INFORMATION
  Report Type: 
  Country: None (occurrence: None)
  Receive Date: 20120410
  Receipt Date: 20120329
  Transmission Date: 20120825
  Serious: Yes (Hospitalization)
  Sender: FDA-Public Use
  Company Number: ES-SANOFI-AVENTIS-2012SA022007

PATIENT
  Age: 69 Year
  Sex: Male

DRUGS (9)
  1. LOVASTATIN [Concomitant]
     Dosage: REGIMEN: EVERY 1 DAYS
     Route: 048
  2. PREDNISONE TAB [Interacting]
     Indication: RHEUMATOID ARTHRITIS
     Route: 048
  3. ENALAPRIL MALEATE [Concomitant]
     Dosage: REGIMEN: EVERY 1 DAYS
     Route: 048
  4. SPIRIVA [Concomitant]
  5. ARAVA [Suspect]
     Indication: RHEUMATOID ARTHRITIS
     Route: 048
     Dates: start: 20080701, end: 20100709
  6. NAPROXEN [Concomitant]
  7. PLAVIX [Concomitant]
     Indication: PROPHYLAXIS
     Dosage: REGIMEN: EVERY 1 DAYS, PHARMACEUTICAL DOSAGE FORM: 82
     Route: 048
     Dates: start: 20100201
  8. METHOTREXATE SODIUM [Interacting]
     Route: 048
  9. LEDERFOLIN [Concomitant]

REACTIONS (2)
  - BRONCHOPULMONARY ASPERGILLOSIS [None]
  - DRUG INTERACTION [None]
